FAERS Safety Report 5842543-X (Version None)
Quarter: 2008Q3

REPORT INFORMATION
  Report Type: 
  Country: None (occurrence: None)
  Receive Date: 20080812
  Receipt Date: 20080731
  Transmission Date: 20090109
  Serious: Yes (Congenital Anomaly)
  Sender: FDA-Public Use
  Company Number: US-PFIZER INC-2008049828

PATIENT
  Sex: Male

DRUGS (4)
  1. ZOLOFT [Suspect]
     Indication: DEPRESSION
     Route: 064
  2. ZOLOFT [Suspect]
     Indication: ANXIETY
  3. PROZAC [Concomitant]
     Dates: start: 20031101, end: 20040101
  4. KLONOPIN [Concomitant]
     Indication: ANXIETY
     Dosage: FREQ:ALMOST EVERY NIGHT TO SLEEP

REACTIONS (6)
  - DRUG EXPOSURE DURING PREGNANCY [None]
  - PULMONARY ARTERY ATRESIA [None]
  - PULMONARY HYPERTENSION [None]
  - PULMONARY VALVE STENOSIS [None]
  - TRICUSPID VALVE DISEASE [None]
  - VENTRICULAR SEPTAL DEFECT [None]
